FAERS Safety Report 8973942 (Version 1)
Quarter: 2012Q4

REPORT INFORMATION
  Report Type: 
  Country: US (occurrence: US)
  Receive Date: 20121218
  Receipt Date: 20121218
  Transmission Date: 20130627
  Serious: No
  Sender: FDA-Public Use
  Company Number: US-ASTRAZENECA-2012SE92000

PATIENT
  Age: 68 Year
  Sex: Female
  Weight: 66.2 kg

DRUGS (4)
  1. CRESTOR [Suspect]
     Indication: BLOOD CHOLESTEROL
     Route: 048
  2. DIFLUCAN [Suspect]
     Route: 048
  3. PRADAXA [Concomitant]
  4. SOTALOL [Concomitant]

REACTIONS (5)
  - Deafness unilateral [Not Recovered/Not Resolved]
  - Blood cholesterol increased [Unknown]
  - Myalgia [Not Recovered/Not Resolved]
  - Drug dose omission [Unknown]
  - Off label use [Unknown]
